FAERS Safety Report 16796235 (Version 1)
Quarter: 2019Q3

REPORT INFORMATION
  Report Type: Spontaneous
  Country: US (occurrence: US)
  Receive Date: 20190911
  Receipt Date: 20190911
  Transmission Date: 20191005
  Serious: No
  Sender: FDA-Public Use
  Company Number: US-BAYER-2019-166199

PATIENT
  Age: 87 Year
  Sex: Male
  Weight: 79 kg

DRUGS (1)
  1. ALEVE [Suspect]
     Active Substance: NAPROXEN SODIUM
     Indication: PAIN
     Dosage: 2 DF, BID
     Route: 048
     Dates: start: 20190910, end: 20190910

REACTIONS (2)
  - Throat irritation [Unknown]
  - Oropharyngeal pain [Unknown]
